FAERS Safety Report 18186036 (Version 2)
Quarter: 2020Q3

REPORT INFORMATION
  Report Type: Spontaneous
  Country: US (occurrence: US)
  Receive Date: 20200824
  Receipt Date: 20200909
  Transmission Date: 20201103
  Serious: No
  Sender: FDA-Public Use
  Company Number: US-GLAXOSMITHKLINE-US2020AMR168311

PATIENT
  Age: 55 Year
  Sex: Female

DRUGS (1)
  1. NUCALA [Suspect]
     Active Substance: MEPOLIZUMAB
     Indication: ASTHMA
     Dosage: 100 MG, CYC
     Dates: start: 2019

REACTIONS (4)
  - Chest discomfort [Unknown]
  - Product dose omission issue [Unknown]
  - Oropharyngeal discomfort [Unknown]
  - Cough [Unknown]

NARRATIVE: CASE EVENT DATE: 202008
